FAERS Safety Report 7231217-9 (Version None)
Quarter: 2011Q1

REPORT INFORMATION
  Report Type: 
  Country: None (occurrence: None)
  Receive Date: 20110118
  Receipt Date: 20110111
  Transmission Date: 20110831
  Serious: Yes (Other)
  Sender: FDA-Public Use
  Company Number: B0680737A

PATIENT

DRUGS (5)
  1. CYCLOPHOSPHAMIDE [Suspect]
     Dosage: 600MGM2 PER DAY
     Route: 042
  2. PACLITAXEL [Suspect]
     Route: 042
  3. EPIDOXORUBICIN [Suspect]
     Dosage: 75MGM2 PER DAY
     Route: 042
  4. LAPATINIB [Suspect]
     Indication: BREAST CANCER
     Dosage: 1500MG PER DAY
     Route: 048
  5. FLUOROURACIL [Suspect]
     Indication: BREAST CANCER
     Dosage: 600MGM2 PER DAY
     Route: 042

REACTIONS (1)
  - NEUTROPENIA [None]
